FAERS Safety Report 8845056 (Version 1)
Quarter: 2012Q4

REPORT INFORMATION
  Report Type: 
  Country: NL (occurrence: NL)
  Receive Date: 20121017
  Receipt Date: 20121017
  Transmission Date: 20130627
  Serious: Yes (Hospitalization)
  Sender: FDA-Public Use
  Company Number: NL-PFIZER INC-2012254490

PATIENT
  Age: 53 Year
  Sex: Female
  Weight: 114 kg

DRUGS (8)
  1. GENOTROPIN PEN [Suspect]
     Dosage: 1.8 mg, 1x/day
     Route: 058
     Dates: start: 20090319
  2. CORTISONE ACETATE [Concomitant]
     Indication: ADRENAL INSUFFICIENCY
     Dosage: UNK
     Dates: start: 19940101
  3. DILTIAZEM [Concomitant]
     Indication: CONTRACEPTION
     Dosage: UNK
     Dates: start: 20070322
  4. DESMOPRESSIN INTRANASAL [Concomitant]
     Indication: BLOOD ANTIDIURETIC HORMONE DECREASED
     Dosage: UNK
     Dates: start: 20070322
  5. LEVOTHYROXINE [Concomitant]
     Indication: HYPOTHYROIDISM
     Dosage: UNK
     Dates: start: 20080313
  6. OMEPRAZOL [Concomitant]
     Indication: PRODUCT USED FOR UNKNOWN INDICATION
     Dosage: UNK
     Dates: start: 20090315
  7. FLECAINIDE [Concomitant]
     Indication: CARDIAC DISORDER
     Dosage: UNK
     Dates: start: 20090319
  8. METOPROLOL [Concomitant]
     Indication: HYPERTENSION
     Dosage: UNK
     Dates: start: 20090319

REACTIONS (1)
  - Surgery [Unknown]
